FAERS Safety Report 23395230 (Version 2)
Quarter: 2024Q1

REPORT INFORMATION
  Report Type: Spontaneous
  Country: US (occurrence: US)
  Receive Date: 20240112
  Receipt Date: 20240115
  Transmission Date: 20240410
  Serious: Yes (Other)
  Sender: FDA-Public Use
  Company Number: US-ABBVIE-5578584

PATIENT
  Age: 48 Year
  Sex: Male

DRUGS (2)
  1. VENETOCLAX [Suspect]
     Active Substance: VENETOCLAX
     Indication: Acute erythroid leukaemia
     Route: 048
  2. AZACITIDINE [Suspect]
     Active Substance: AZACITIDINE
     Indication: Acute erythroid leukaemia
     Route: 065

REACTIONS (3)
  - Acute erythroid leukaemia [Unknown]
  - Off label use [Unknown]
  - Drug ineffective for unapproved indication [Unknown]
